FAERS Safety Report 23038454 (Version 2)
Quarter: 2023Q4

REPORT INFORMATION
  Report Type: Report from Study
  Country: TW (occurrence: None)
  Receive Date: 20231006
  Receipt Date: 20231025
  Transmission Date: 20240109
  Serious: Yes (Other)
  Sender: FDA-Public Use
  Company Number: 2023A225005

PATIENT
  Sex: Male

DRUGS (1)
  1. IMFINZI [Suspect]
     Active Substance: DURVALUMAB
     Indication: Supplementation therapy
     Dosage: 600.0MG UNKNOWN
     Route: 041

REACTIONS (4)
  - Blood pressure increased [Unknown]
  - Asthenia [Unknown]
  - Gingival swelling [Unknown]
  - Decreased appetite [Unknown]
